FAERS Safety Report 7987789-X (Version None)
Quarter: 2011Q4

REPORT INFORMATION
  Report Type: 
  Country: None (occurrence: None)
  Receive Date: 20111216
  Receipt Date: 20111212
  Transmission Date: 20120403
  Serious: No
  Sender: FDA-Public Use
  Company Number: US-B.I. PHARMACEUTICALS,INC./RIDGEFIELD-2011-BP-27961BP

PATIENT
  Sex: Female

DRUGS (6)
  1. PRILOSEC [Suspect]
     Indication: DYSPEPSIA
  2. ZANTAC 150 [Suspect]
     Indication: DYSPEPSIA
     Dosage: 150 MG
     Route: 048
     Dates: start: 20111209
  3. BYSTOLIC [Concomitant]
     Indication: HYPERTENSION
     Route: 048
  4. ZOCOR [Concomitant]
     Indication: BLOOD CHOLESTEROL INCREASED
     Dosage: 40 MG
     Route: 048
  5. AVALIDE [Concomitant]
     Indication: HYPERTENSION
     Dosage: 300 MG
     Route: 048
  6. SYNTHROID [Concomitant]
     Indication: HYPOTHYROIDISM
     Dosage: 137 MCG
     Route: 048

REACTIONS (1)
  - TINNITUS [None]
